FAERS Safety Report 14956392 (Version 7)
Quarter: 2019Q3

REPORT INFORMATION
  Report Type: Spontaneous
  Country: US (occurrence: US)
  Receive Date: 20180531
  Receipt Date: 20190919
  Transmission Date: 20191004
  Serious: Yes (Other)
  Sender: FDA-Public Use
  Company Number: US-PFIZER INC-2018201427

PATIENT
  Age: 64 Year
  Sex: Female
  Weight: 45 kg

DRUGS (2)
  1. LYRICA [Suspect]
     Active Substance: PREGABALIN
     Indication: NEURALGIA
     Dosage: 50 MG, 2X/DAY
  2. CYMBALTA [Concomitant]
     Active Substance: DULOXETINE HYDROCHLORIDE
     Indication: ANXIETY
     Dosage: 30 MG, 1X/DAY (IN MORNING)

REACTIONS (9)
  - Sialoadenitis [Recovered/Resolved]
  - Feeling abnormal [Recovered/Resolved]
  - Vomiting [Recovered/Resolved]
  - Arthritis [Recovered/Resolved]
  - Intentional product misuse [Unknown]
  - Withdrawal syndrome [Recovered/Resolved]
  - Tooth infection [Recovered/Resolved]
  - Product dose omission [Unknown]
  - Paraesthesia [Recovered/Resolved]

NARRATIVE: CASE EVENT DATE: 201803
